FAERS Safety Report 13460260 (Version 1)
Quarter: 2017Q2

REPORT INFORMATION
  Report Type: Report from Study
  Country: BR (occurrence: BR)
  Receive Date: 20170420
  Receipt Date: 20170420
  Transmission Date: 20170830
  Serious: Yes (Hospitalization, Other)
  Sender: FDA-Public Use
  Company Number: BR-JNJFOC-20170415325

PATIENT
  Age: 27 Year
  Sex: Male
  Weight: 50 kg

DRUGS (3)
  1. REMICADE [Suspect]
     Active Substance: INFLIXIMAB
     Indication: CROHN^S DISEASE
     Route: 042
     Dates: start: 20160511, end: 20160818
  2. AZATHIOPRINE. [Concomitant]
     Active Substance: AZATHIOPRINE
     Route: 065
  3. REMICADE [Suspect]
     Active Substance: INFLIXIMAB
     Indication: CROHN^S DISEASE
     Route: 042

REACTIONS (8)
  - Pulmonary thrombosis [Recovered/Resolved]
  - Tuberculosis [Recovered/Resolved]
  - Hospitalisation [Unknown]
  - Incorrect dose administered [Unknown]
  - Off label use [Unknown]
  - Intestinal obstruction [Unknown]
  - Pneumonia [Recovered/Resolved]
  - Intestinal resection [Unknown]

NARRATIVE: CASE EVENT DATE: 20160511
